FAERS Safety Report 21565857 (Version 1)
Quarter: 2022Q4

REPORT INFORMATION
  Report Type: Spontaneous
  Country: US (occurrence: None)
  Receive Date: 20221107
  Receipt Date: 20221107
  Transmission Date: 20230113
  Serious: Yes (Hospitalization)
  Sender: FDA-Public Use
  Company Number: None

PATIENT
  Age: 56 Year
  Sex: Female
  Weight: 60.75 kg

DRUGS (2)
  1. CUTAQUIG [Suspect]
     Active Substance: HUMAN IMMUNOGLOBULIN G
     Indication: Immunodeficiency common variable
     Dosage: OTHER FREQUENCY : 10G SC EVERY 7 DAY;?
     Route: 058
     Dates: start: 20220721, end: 20221028
  2. CUTAQUIG [Suspect]
     Active Substance: HUMAN IMMUNOGLOBULIN G
     Indication: Immunodeficiency common variable
     Dosage: OTHER FREQUENCY : 10G SC EVERY7 DAYS;?
     Route: 058
     Dates: start: 20220721, end: 20221028

REACTIONS (3)
  - Asthenia [None]
  - Dyspnoea [None]
  - Pulmonary thrombosis [None]

NARRATIVE: CASE EVENT DATE: 20221104
